FAERS Safety Report 9009274 (Version 3)
Quarter: 2013Q1

REPORT INFORMATION
  Report Type: Spontaneous
  Country: JP (occurrence: JP)
  Receive Date: 20130111
  Receipt Date: 20130207
  Transmission Date: 20140127
  Serious: Yes (Hospitalization)
  Sender: FDA-Public Use
  Company Number: JP-GLAXOSMITHKLINE-B0857640A

PATIENT
  Age: 66 Year
  Sex: Female

DRUGS (9)
  1. LAMICTAL [Suspect]
     Indication: BIPOLAR DISORDER
     Dosage: 25MG PER DAY
     Route: 048
     Dates: start: 20121130, end: 20121206
  2. LAMICTAL [Suspect]
     Indication: BIPOLAR DISORDER
     Dosage: 50MG TWICE PER DAY
     Route: 048
     Dates: start: 20121207, end: 20121213
  3. LAMICTAL [Suspect]
     Indication: BIPOLAR DISORDER
     Dosage: 100MG PER DAY
     Route: 048
     Dates: start: 20121214, end: 20121231
  4. LAMICTAL [Suspect]
     Indication: BIPOLAR DISORDER
     Dosage: 50MG PER DAY
     Route: 048
     Dates: start: 20130101, end: 20130101
  5. LAMICTAL [Suspect]
     Indication: BIPOLAR DISORDER
     Dosage: 25MG PER DAY
     Route: 048
     Dates: start: 20130102, end: 20130102
  6. PAXIL [Suspect]
     Indication: DEPRESSION
     Route: 048
     Dates: end: 200904
  7. LIMAS [Concomitant]
     Route: 048
  8. LIMAS [Concomitant]
     Dosage: 200MG TWICE PER DAY
     Route: 048
     Dates: start: 20110805
  9. ROHYPNOL [Concomitant]
     Dosage: 1MG PER DAY
     Route: 048
     Dates: start: 20100520

REACTIONS (5)
  - Drug eruption [Recovering/Resolving]
  - Oral mucosa erosion [Unknown]
  - Eczema [Unknown]
  - Generalised erythema [Unknown]
  - Drug effect incomplete [Unknown]
